FAERS Safety Report 4983390-0 (Version None)
Quarter: 2006Q2

REPORT INFORMATION
  Report Type: 
  Country: None (occurrence: None)
  Receive Date: 20060426
  Receipt Date: 20050112
  Transmission Date: 20061013
  Serious: Yes (Hospitalization, Other)
  Sender: FDA-Public Use
  Company Number: US-MERCK-0501USA02222

PATIENT
  Age: 47 Year
  Sex: Female
  Weight: 64 kg

DRUGS (2)
  1. VIOXX [Suspect]
     Indication: ARTHRITIS
     Route: 048
     Dates: start: 20000630, end: 20030101
  2. VIOXX [Suspect]
     Indication: ARTHRALGIA
     Route: 048
     Dates: start: 20000630, end: 20030101

REACTIONS (51)
  - AMMONIA INCREASED [None]
  - ANAEMIA [None]
  - ARTHROPATHY [None]
  - ASCITES [None]
  - ASTHENIA [None]
  - CARDIAC FAILURE CONGESTIVE [None]
  - CENTRAL LINE INFECTION [None]
  - CEREBROVASCULAR ACCIDENT [None]
  - CHEST INJURY [None]
  - CHEST PAIN [None]
  - CLOSTRIDIUM COLITIS [None]
  - DEEP VEIN THROMBOSIS [None]
  - DELIRIUM [None]
  - DEPRESSION [None]
  - EMPHYSEMA [None]
  - ENDOCARDITIS [None]
  - EXTRADURAL ABSCESS [None]
  - FACIAL PARESIS [None]
  - FALL [None]
  - FLUID OVERLOAD [None]
  - GASTROINTESTINAL HAEMORRHAGE [None]
  - HAEMOPTYSIS [None]
  - HEADACHE [None]
  - HYPERTENSION [None]
  - HYPOTENSION [None]
  - HYPOXIA [None]
  - ILEUS [None]
  - INTERVERTEBRAL DISCITIS [None]
  - MENINGITIS BACTERIAL [None]
  - METABOLIC ACIDOSIS [None]
  - MUSCLE ABSCESS [None]
  - MYOCARDIAL INFARCTION [None]
  - NECK PAIN [None]
  - NEPHROLITHIASIS [None]
  - OSTEOARTHRITIS [None]
  - OSTEOMYELITIS [None]
  - OSTEONECROSIS [None]
  - OTITIS MEDIA [None]
  - PARALYSIS [None]
  - PNEUMONIA [None]
  - PRESCRIBED OVERDOSE [None]
  - PSYCHOTIC DISORDER [None]
  - RENAL FAILURE ACUTE [None]
  - RESPIRATORY FAILURE [None]
  - STAPHYLOCOCCAL BACTERAEMIA [None]
  - STAPHYLOCOCCAL SEPSIS [None]
  - SYSTEMIC CANDIDA [None]
  - TACHYCARDIA [None]
  - TRICUSPID VALVE INCOMPETENCE [None]
  - URINARY TRACT INFECTION PSEUDOMONAL [None]
  - VASCULAR PSEUDOANEURYSM [None]
